FAERS Safety Report 5871588-9 (Version None)
Quarter: 2008Q3

REPORT INFORMATION
  Report Type: 
  Country: None (occurrence: None)
  Receive Date: 20080905
  Receipt Date: 20080610
  Transmission Date: 20090109
  Serious: No
  Sender: FDA-Public Use
  Company Number: A0732250A

PATIENT
  Age: 87 Year
  Sex: Male

DRUGS (3)
  1. REQUIP [Suspect]
     Indication: RESTLESS LEGS SYNDROME
     Dosage: 1MG PER DAY
     Route: 048
     Dates: start: 20080401, end: 20080601
  2. LIPITOR [Concomitant]
  3. BLOOD PRESSURE MEDICATION [Concomitant]

REACTIONS (6)
  - ANOREXIA [None]
  - BACK CRUSHING [None]
  - DYSGEUSIA [None]
  - FALL [None]
  - MYALGIA [None]
  - WEIGHT DECREASED [None]
